FAERS Safety Report 16534342 (Version 1)
Quarter: 2019Q3

REPORT INFORMATION
  Report Type: Spontaneous
  Country: SE (occurrence: SE)
  Receive Date: 20190705
  Receipt Date: 20190705
  Transmission Date: 20191004
  Serious: Yes (Other)
  Sender: FDA-Public Use
  Company Number: SE-SCIEGEN PHARMACEUTICALS INC-2019SCILIT00207

PATIENT
  Age: 50 Year
  Sex: Female

DRUGS (3)
  1. QUETIAPINE. [Suspect]
     Active Substance: QUETIAPINE
  2. METHYLPHENIDATE. [Suspect]
     Active Substance: METHYLPHENIDATE
  3. ZOPICLONE [Suspect]
     Active Substance: ZOPICLONE

REACTIONS (7)
  - Bezoar [Unknown]
  - Nystagmus [Unknown]
  - Pneumonia aspiration [Unknown]
  - Overdose [Unknown]
  - Muscle twitching [Unknown]
  - Tachycardia [Unknown]
  - Depressed level of consciousness [Unknown]
